FAERS Safety Report 23024650 (Version 1)
Quarter: 2023Q4

REPORT INFORMATION
  Report Type: Spontaneous
  Country: US (occurrence: US)
  Receive Date: 20231004
  Receipt Date: 20231004
  Transmission Date: 20240110
  Serious: No
  Sender: FDA-Public Use
  Company Number: US-PADAGIS-2023PAD01392

PATIENT

DRUGS (3)
  1. ESTRADIOL VAGINAL [Suspect]
     Active Substance: ESTRADIOL
     Indication: Oestrogen deficiency
     Dosage: UNK, THREE TIMES A WEEK (FINGURETIP AMOUNT)
     Route: 065
  2. ESTRADIOL VAGINAL [Suspect]
     Active Substance: ESTRADIOL
     Indication: Urethritis noninfective
  3. ESTRADIOL VAGINAL [Suspect]
     Active Substance: ESTRADIOL
     Indication: Cystitis

REACTIONS (3)
  - Vaginal infection [Unknown]
  - Product prescribing error [Unknown]
  - Product use in unapproved indication [Unknown]
